FAERS Safety Report 7715121-5 (Version None)
Quarter: 2011Q3

REPORT INFORMATION
  Report Type: 
  Country: None (occurrence: None)
  Receive Date: 20110829
  Receipt Date: 20110817
  Transmission Date: 20111222
  Serious: Yes (Hospitalization, Other)
  Sender: FDA-Public Use
  Company Number: PHHY2011DE12014

PATIENT
  Sex: Female
  Weight: 82 kg

DRUGS (5)
  1. ZOMETA [Suspect]
     Dosage: 4 MG, EVERY 4 WEEKS
     Route: 042
     Dates: start: 20110713, end: 20110713
  2. ANASTROZOLE [Concomitant]
     Dosage: UNK UKN, UNK
     Dates: start: 20070801
  3. RAMIPRIL [Concomitant]
     Indication: HYPERTENSION
     Dosage: UNK UKN, UNK
     Dates: start: 19800101
  4. HYDROCHLOROTHIAZIDE [Concomitant]
     Indication: HYPERTENSION
     Dosage: UNK UKN, UNK
     Dates: start: 20000101
  5. ZOMETA [Suspect]
     Indication: PROPHYLAXIS
     Dosage: 4 MG, EVERY 4 WEEKS
     Route: 042
     Dates: start: 20091117

REACTIONS (10)
  - PAIN IN JAW [None]
  - ARTHRALGIA [None]
  - GENERAL PHYSICAL HEALTH DETERIORATION [None]
  - ERYTHEMA [None]
  - SWELLING [None]
  - ABSCESS JAW [None]
  - OSTEONECROSIS OF JAW [None]
  - BURSITIS [None]
  - OSTEITIS [None]
  - DYSPNOEA [None]
